FAERS Safety Report 9377370 (Version 4)
Quarter: 2013Q3

REPORT INFORMATION
  Report Type: Spontaneous
  Country: NO (occurrence: NO)
  Receive Date: 20130701
  Receipt Date: 20130912
  Transmission Date: 20140515
  Serious: Yes (Death, Hospitalization)
  Sender: FDA-Public Use
  Company Number: NO-PFIZER INC-2013192335

PATIENT
  Age: 82 Year
  Sex: Male

DRUGS (11)
  1. MEDROL [Suspect]
     Dosage: 8 MG, 1X/DAY
     Route: 065
     Dates: start: 20121017
  2. FRAGMIN [Suspect]
     Dosage: 5000 IU, 1X/DAY
     Route: 065
     Dates: start: 20121110
  3. RAMIPRIL [Suspect]
     Dosage: 10 MG, 1X/DAY
     Route: 065
  4. ALBYL-E [Suspect]
     Dosage: 160 MG, 1X/DAY
     Route: 048
  5. SOMAC [Concomitant]
     Dosage: 40 MG, 1X/DAY
     Dates: start: 20121017
  6. LAXOBERAL [Concomitant]
     Dosage: 10 GTT, 1X/DAY
     Dates: start: 20121109
  7. GALVUS [Concomitant]
     Dosage: 50 MG, 2X/DAY
  8. INSULATARD [Concomitant]
     Indication: DIABETES MELLITUS
     Dosage: UNK
  9. ACTRAPID [Concomitant]
     Indication: DIABETES MELLITUS
     Dosage: UNK
  10. MOVICOL [Concomitant]
     Dosage: 1 DF, 2X/DAY
     Dates: start: 20121109
  11. SIMVASTATIN [Concomitant]
     Dosage: 20 MG, 1X/DAY
     Route: 048
     Dates: start: 2006

REACTIONS (5)
  - Death [Fatal]
  - Duodenal ulcer haemorrhage [Fatal]
  - General physical health deterioration [Unknown]
  - Chest pain [Unknown]
  - Vomiting [Unknown]
